FAERS Safety Report 10948589 (Version 1)
Quarter: 2015Q1

REPORT INFORMATION
  Report Type: Spontaneous
  Country: US (occurrence: US)
  Receive Date: 20150324
  Receipt Date: 20150324
  Transmission Date: 20150721
  Serious: No
  Sender: FDA-Public Use
  Company Number: US-009507513-1503USA009204

PATIENT
  Age: 19 Year
  Sex: Female

DRUGS (1)
  1. NEXPLANON [Suspect]
     Active Substance: ETONOGESTREL
     Indication: CONTRACEPTION
     Dosage: 1 ROD, UNK
     Dates: start: 20150220, end: 20150221

REACTIONS (3)
  - Cellulitis [Unknown]
  - Implant site erythema [Unknown]
  - Implant site warmth [Unknown]

NARRATIVE: CASE EVENT DATE: 20150221
